FAERS Safety Report 25720924 (Version 2)
Quarter: 2025Q3

REPORT INFORMATION
  Report Type: Spontaneous
  Country: US (occurrence: US)
  Receive Date: 20250825
  Receipt Date: 20250905
  Transmission Date: 20251021
  Serious: No
  Sender: Valinor Pharma
  Company Number: US-GRUNENTHAL-2025-113088

PATIENT
  Age: 78 Year
  Sex: Male

DRUGS (3)
  1. MOVANTIK [Suspect]
     Active Substance: NALOXEGOL OXALATE
     Indication: Constipation
     Dosage: 25 MILLIGRAM, 1/DAY
     Route: 048
  2. FENTANYL [Suspect]
     Active Substance: FENTANYL
     Dosage: 125 MICROGRAM, EVERY 3 DAYS
     Route: 065
  3. OXYCODONE [Concomitant]
     Active Substance: OXYCODONE
     Route: 065

REACTIONS (1)
  - Drug screen negative [Unknown]
